FAERS Safety Report 5645180-5 (Version None)
Quarter: 2008Q1

REPORT INFORMATION
  Report Type: 
  Country: None (occurrence: None)
  Receive Date: 20080229
  Receipt Date: 20080218
  Transmission Date: 20080703
  Serious: Yes (Other)
  Sender: FDA-Public Use
  Company Number: CA-JNJFOC-20080204429

PATIENT
  Sex: Female

DRUGS (6)
  1. DURAGESIC-100 [Suspect]
     Route: 062
  2. DURAGESIC-100 [Suspect]
     Indication: FIBROMYALGIA
     Route: 062
  3. BIAXIN XL [Interacting]
     Indication: UPPER RESPIRATORY TRACT INFECTION
     Route: 048
  4. THYROID PILLS [Concomitant]
     Indication: DRUG USE FOR UNKNOWN INDICATION
     Route: 065
  5. SLEEPING PILLS [Concomitant]
     Indication: DRUG USE FOR UNKNOWN INDICATION
     Route: 065
  6. SUPEUDOL [Concomitant]
     Indication: PAIN
     Route: 048

REACTIONS (7)
  - DISTURBANCE IN ATTENTION [None]
  - DRUG INTERACTION [None]
  - FEELING ABNORMAL [None]
  - NAUSEA [None]
  - OVERDOSE [None]
  - SOMNOLENCE [None]
  - UPPER RESPIRATORY TRACT INFECTION [None]
